FAERS Safety Report 13343908 (Version 1)
Quarter: 2017Q1

REPORT INFORMATION
  Report Type: Spontaneous
  Country: GB (occurrence: GB)
  Receive Date: 20170316
  Receipt Date: 20170316
  Transmission Date: 20170428
  Serious: Yes (Other)
  Sender: FDA-Public Use
  Company Number: GB-ABBVIE-17P-167-1908231-00

PATIENT
  Age: 66 Year
  Sex: Female
  Weight: 58.51 kg

DRUGS (2)
  1. OVESTIN [Concomitant]
     Active Substance: ESTRIOL
     Indication: PRODUCT USED FOR UNKNOWN INDICATION
     Route: 065
  2. CLARITHROMYCIN. [Suspect]
     Active Substance: CLARITHROMYCIN
     Indication: SINUSITIS
     Route: 048
     Dates: start: 20170217

REACTIONS (5)
  - Dysgeusia [Unknown]
  - Dry throat [Recovered/Resolved with Sequelae]
  - Breath odour [Unknown]
  - Tongue discolouration [Unknown]
  - Flatulence [Recovered/Resolved]

NARRATIVE: CASE EVENT DATE: 20170218
